FAERS Safety Report 8966292 (Version 1)
Quarter: 2012Q4

REPORT INFORMATION
  Report Type: 
  Country: FR (occurrence: FR)
  Receive Date: 20121214
  Receipt Date: 20121214
  Transmission Date: 20130627
  Serious: Yes (Hospitalization)
  Sender: FDA-Public Use
  Company Number: FR-BRISTOL-MYERS SQUIBB COMPANY-17184698

PATIENT
  Age: 53 Year
  Sex: Male

DRUGS (4)
  1. REYATAZ CAPS 300 MG [Suspect]
     Indication: HIV INFECTION
     Route: 048
     Dates: start: 20051123
  2. KIVEXA [Suspect]
     Indication: HIV INFECTION
     Dosage: 1 df = 600mg/300mg film-coated tablet
     Route: 048
     Dates: start: 20121123
  3. NORVIR [Suspect]
     Indication: HIV INFECTION
     Route: 048
     Dates: start: 20051123
  4. UVEDOSE [Concomitant]
     Dosage: 1 DF = 100000 IU/2mL

REACTIONS (2)
  - Osteonecrosis [Not Recovered/Not Resolved]
  - Hypercorticoidism [Not Recovered/Not Resolved]
